FAERS Safety Report 7928376 (Version 2)
Quarter: 2012Q4

REPORT INFORMATION
  Report Type: 
  Country: US (occurrence: US)
  Receive Date: 20110503
  Receipt Date: 20121012
  Transmission Date: 20130627
  Serious: Yes (Hospitalization, Other)
  Sender: FDA-Public Use
  Company Number: US-ROCHE-749861

PATIENT
  Age: 21 None
  Sex: Male
  Weight: 99.8 kg

DRUGS (3)
  1. ACCUTANE [Suspect]
     Indication: ACNE CYSTIC
     Route: 065
     Dates: start: 1982, end: 1983
  2. ACCUTANE [Suspect]
     Route: 065
     Dates: start: 1984, end: 1985
  3. ACCUTANE [Suspect]
     Route: 065
     Dates: start: 1987, end: 1988

REACTIONS (10)
  - Colitis ulcerative [Unknown]
  - Gastrointestinal injury [Unknown]
  - Hepatic enzyme increased [Unknown]
  - Blood triglycerides increased [Unknown]
  - Inflammatory bowel disease [Unknown]
  - Irritable bowel syndrome [Unknown]
  - Renal disorder [Unknown]
  - Depression [Unknown]
  - Suicidal ideation [Unknown]
  - Large intestine polyp [Unknown]
